FAERS Safety Report 18887680 (Version 6)
Quarter: 2021Q3

REPORT INFORMATION
  Report Type: Report from Study
  Country: BR (occurrence: BR)
  Receive Date: 20210212
  Receipt Date: 20210827
  Transmission Date: 20211014
  Serious: Yes (Other)
  Sender: FDA-Public Use
  Company Number: NVSC2021BR031321

PATIENT
  Age: 54 Year
  Sex: Female

DRUGS (3)
  1. KISQALI [Suspect]
     Active Substance: RIBOCICLIB
     Dosage: UNK
     Route: 065
     Dates: start: 20201021
  2. KISQALI [Suspect]
     Active Substance: RIBOCICLIB
     Dosage: 3 DF (21 DAY USE AND 7 DAY BREAK)
     Route: 065
     Dates: start: 20201121
  3. KISQALI [Suspect]
     Active Substance: RIBOCICLIB
     Indication: BREAST CANCER METASTATIC
     Dosage: TAKES FOR 21 DAYS AND PAUSES FOR 7
     Route: 065
     Dates: start: 20191121

REACTIONS (3)
  - Immunodeficiency [Recovered/Resolved]
  - Immunodeficiency [Recovered/Resolved]
  - Bone disorder [Unknown]

NARRATIVE: CASE EVENT DATE: 20210125
